FAERS Safety Report 4826043-1 (Version None)
Quarter: 2005Q4

REPORT INFORMATION
  Report Type: 
  Country: None (occurrence: None)
  Receive Date: 20051110
  Receipt Date: 20051110
  Transmission Date: 20060501
  Serious: Yes (Hospitalization)
  Sender: FDA-Public Use
  Company Number: None

PATIENT
  Sex: Female
  Weight: 34.0198 kg

DRUGS (1)
  1. KETOROLAC 10 MG TAB ETHEX [Suspect]
     Indication: PAIN
     Dosage: 10 MG Q 6 HOURS PO
     Route: 048
     Dates: start: 20051107

REACTIONS (3)
  - CHEST DISCOMFORT [None]
  - DYSPNOEA [None]
  - SWELLING FACE [None]
